FAERS Safety Report 20587853 (Version 2)
Quarter: 2022Q1

REPORT INFORMATION
  Report Type: Spontaneous
  Country: KZ (occurrence: KZ)
  Receive Date: 20220314
  Receipt Date: 20220328
  Transmission Date: 20220424
  Serious: Yes (Life-Threatening)
  Sender: FDA-Public Use
  Company Number: KZ-CIPLA (EU) LIMITED-2022KZ00961

PATIENT

DRUGS (3)
  1. BOSENTAN [Suspect]
     Active Substance: BOSENTAN
     Indication: Pulmonary arterial hypertension
     Dosage: UNK, TABLET
     Route: 048
     Dates: start: 20201109, end: 20210830
  2. BOSENTAN [Suspect]
     Active Substance: BOSENTAN
     Indication: Pulmonary arterial hypertension
  3. PENEGRA [Concomitant]
     Indication: Vasodilatation
     Dosage: 75 MG DAILY
     Route: 048
     Dates: start: 20190905, end: 20220127

REACTIONS (3)
  - Cardiac disorder [Not Recovered/Not Resolved]
  - Drug ineffective [Not Recovered/Not Resolved]
  - Suspected counterfeit product [Unknown]
